FAERS Safety Report 24642361 (Version 1)
Quarter: 2024Q4

REPORT INFORMATION
  Report Type: Spontaneous
  Country: US (occurrence: None)
  Receive Date: 20241119
  Receipt Date: 20241119
  Transmission Date: 20250114
  Serious: Yes (Hospitalization)
  Sender: Public
  Company Number: None

PATIENT
  Age: 88 Year
  Sex: Male
  Weight: 83.1 kg

DRUGS (2)
  1. REGADENOSON [Suspect]
     Active Substance: REGADENOSON
     Indication: Scan myocardial perfusion
     Dosage: OTHER FREQUENCY : ONCE;?
     Route: 042
  2. MYOVIEW [Concomitant]
     Active Substance: TECHNETIUM TC-99M TETROFOSMIN
     Dates: start: 20241023, end: 20241023

REACTIONS (3)
  - Headache [None]
  - Dizziness [None]
  - Abnormal sensation in eye [None]

NARRATIVE: CASE EVENT DATE: 20241023
